FAERS Safety Report 24163867 (Version 3)
Quarter: 2025Q2

REPORT INFORMATION
  Report Type: Report from Study
  Country: CO (occurrence: CO)
  Receive Date: 20240801
  Receipt Date: 20250512
  Transmission Date: 20250716
  Serious: Yes (Other)
  Sender: ABBVIE
  Company Number: CO-ABBVIE-5860915

PATIENT
  Sex: Female
  Weight: 90 kg

DRUGS (2)
  1. SKYRIZI [Suspect]
     Active Substance: RISANKIZUMAB-RZAA
     Indication: Psoriasis
     Dosage: FORM STRENGTH: 150 MG?DOSE FORM- SOLUTION FOR INJECTION IN PRE-FILLED SYRINGE
     Route: 058
     Dates: start: 20210326, end: 20240422
  2. SKYRIZI [Suspect]
     Active Substance: RISANKIZUMAB-RZAA
     Dosage: FORM STRENGTH: 150 MG?DOSE FORM- SOLUTION FOR INJECTION IN PRE-FILLED SYRINGE
     Route: 058

REACTIONS (4)
  - Cataract [Not Recovered/Not Resolved]
  - Blepharitis [Unknown]
  - Eye haemorrhage [Unknown]
  - Optic neuropathy [Unknown]
